FAERS Safety Report 12380021 (Version 1)
Quarter: 2016Q2

REPORT INFORMATION
  Report Type: Spontaneous
  Country: US (occurrence: US)
  Receive Date: 20160518
  Receipt Date: 20160518
  Transmission Date: 20160815
  Serious: Yes (Hospitalization)
  Sender: FDA-Public Use
  Company Number: US-BEH-2016062785

PATIENT
  Sex: Female
  Weight: 85 kg

DRUGS (46)
  1. XOPENEX [Concomitant]
     Active Substance: LEVALBUTEROL HYDROCHLORIDE
  2. HYDROMET [Concomitant]
     Active Substance: HOMATROPINE METHYLBROMIDE\HYDROCODONE BITARTRATE
  3. VITAMIN D [Concomitant]
     Active Substance: CHOLECALCIFEROL
  4. ZOFRAN [Concomitant]
     Active Substance: ONDANSETRON HYDROCHLORIDE
  5. MUPIROCIN. [Concomitant]
     Active Substance: MUPIROCIN
  6. CREON [Concomitant]
     Active Substance: PANCRELIPASE AMYLASE\PANCRELIPASE LIPASE\PANCRELIPASE PROTEASE
  7. LEVALBUTEROL. [Concomitant]
     Active Substance: LEVALBUTEROL
  8. BACTRIM [Concomitant]
     Active Substance: SULFAMETHOXAZOLE\TRIMETHOPRIM
  9. PREDNISONE. [Concomitant]
     Active Substance: PREDNISONE
  10. CORTICOSTEROIDS [Concomitant]
     Active Substance: CORTICOSTEROID NOS
  11. ALEVE [Concomitant]
     Active Substance: NAPROXEN SODIUM
  12. AFRIN [Concomitant]
     Active Substance: OXYMETAZOLINE
  13. EPIPEN [Concomitant]
     Active Substance: EPINEPHRINE
  14. PROMETHAZINE [Concomitant]
     Active Substance: PROMETHAZINE\PROMETHAZINE HYDROCHLORIDE
  15. PROBIOTIC [Concomitant]
     Active Substance: PROBIOTICS NOS
  16. ZITHROMAX [Concomitant]
     Active Substance: AZITHROMYCIN DIHYDRATE
  17. ZYRTEC [Concomitant]
     Active Substance: CETIRIZINE HYDROCHLORIDE
  18. PULMICORT TURBUHALER [Concomitant]
     Active Substance: BUDESONIDE
  19. IRON [Concomitant]
     Active Substance: IRON
  20. FUROSEMIDE. [Concomitant]
     Active Substance: FUROSEMIDE
  21. METOCLOPRAMIDE. [Concomitant]
     Active Substance: METOCLOPRAMIDE
  22. QVAR [Concomitant]
     Active Substance: BECLOMETHASONE DIPROPIONATE
  23. CLOTRIMAZOLE. [Concomitant]
     Active Substance: CLOTRIMAZOLE
  24. DIFLUCAN [Concomitant]
     Active Substance: FLUCONAZOLE
  25. NEXIUM [Concomitant]
     Active Substance: ESOMEPRAZOLE MAGNESIUM
  26. DIPHENHYDRAMINE. [Concomitant]
     Active Substance: DIPHENHYDRAMINE
  27. MUCINEX [Concomitant]
     Active Substance: GUAIFENESIN
  28. XIFAXAN [Concomitant]
     Active Substance: RIFAXIMIN
  29. LIDOCAINE. [Concomitant]
     Active Substance: LIDOCAINE
  30. LMX [Concomitant]
     Active Substance: LIDOCAINE
  31. VENTOLIN [Concomitant]
     Active Substance: ALBUTEROL SULFATE
  32. COLESTIPOL [Concomitant]
     Active Substance: COLESTIPOL
  33. HIZENTRA [Suspect]
     Active Substance: HUMAN IMMUNOGLOBULIN G
     Indication: IMMUNODEFICIENCY COMMON VARIABLE
     Route: 042
     Dates: start: 20160420
  34. SPIRIVA [Concomitant]
     Active Substance: TIOTROPIUM BROMIDE MONOHYDRATE
  35. FLECTOR [Concomitant]
     Active Substance: DICLOFENAC EPOLAMINE
  36. TETRAHYDROZOLINE [Concomitant]
     Active Substance: TETRAHYDROZOLINE
  37. BUTALBITAL-ACETAMINOPHEN-CAFFE [Concomitant]
  38. PREMARIN [Concomitant]
     Active Substance: ESTROGENS, CONJUGATED
  39. IMODIUM [Concomitant]
     Active Substance: LOPERAMIDE HYDROCHLORIDE
  40. METFORMIN [Concomitant]
     Active Substance: METFORMIN HYDROCHLORIDE
  41. MULTIVITAMINS [Concomitant]
     Active Substance: VITAMINS
  42. POTASSIUM [Concomitant]
     Active Substance: POTASSIUM
  43. FLUDROCORTISONE [Concomitant]
     Active Substance: FLUDROCORTISONE
  44. LOMOTIL [Concomitant]
     Active Substance: ATROPINE SULFATE\DIPHENOXYLATE HYDROCHLORIDE
  45. THEOPHYLLINE [Concomitant]
     Active Substance: THEOPHYLLINE ANHYDROUS
  46. AZELASTINE [Concomitant]
     Active Substance: AZELASTINE

REACTIONS (1)
  - Pulmonary embolism [Unknown]
